FAERS Safety Report 23043365 (Version 1)
Quarter: 2023Q4

REPORT INFORMATION
  Report Type: Spontaneous
  Country: US (occurrence: US)
  Receive Date: 20231009
  Receipt Date: 20231009
  Transmission Date: 20240109
  Serious: No
  Sender: FDA-Public Use
  Company Number: US-AMGEN-USASP2023175346

PATIENT

DRUGS (1)
  1. PROLIA [Suspect]
     Active Substance: DENOSUMAB
     Indication: Osteoporosis
     Dosage: UNK
     Route: 065

REACTIONS (7)
  - Bladder disorder [Unknown]
  - Discomfort [Unknown]
  - Chills [Unknown]
  - Fatigue [Unknown]
  - Insomnia [Unknown]
  - Asthenia [Unknown]
  - Bone pain [Unknown]
